FAERS Safety Report 6584206-1 (Version None)
Quarter: 2010Q1

REPORT INFORMATION
  Report Type: 
  Country: None (occurrence: None)
  Receive Date: 20100216
  Receipt Date: 20100119
  Transmission Date: 20100710
  Serious: No
  Sender: FDA-Public Use
  Company Number: US-ABBOTT-10P-163-0620331-00

PATIENT
  Sex: Male
  Weight: 88.53 kg

DRUGS (2)
  1. SIMCOR [Suspect]
     Indication: BLOOD CHOLESTEROL INCREASED
     Dosage: AT BEDTIME
     Route: 048
     Dates: start: 20100116
  2. UNKNOWN MEDICATIONS [Concomitant]
     Indication: DRUG USE FOR UNKNOWN INDICATION

REACTIONS (1)
  - DIZZINESS [None]
